FAERS Safety Report 10310226 (Version 2)
Quarter: 2014Q3

REPORT INFORMATION
  Report Type: Spontaneous
  Country: DE (occurrence: DE)
  Receive Date: 20140717
  Receipt Date: 20140726
  Transmission Date: 20150326
  Serious: Yes (Life-Threatening, Congenital Anomaly, Other)
  Sender: FDA-Public Use
  Company Number: DE-009507513-1407DEU004073

PATIENT
  Age: 1 Day
  Sex: Female
  Weight: 3.94 kg

DRUGS (3)
  1. METOPROLOL [Concomitant]
     Active Substance: METOPROLOL
     Dosage: 100 MG, BID; EXPOSURE IN 1ST TRIMESTER
     Route: 064
     Dates: start: 20130217, end: 20131015
  2. LOSARTAN POTASSIUM. [Suspect]
     Active Substance: LOSARTAN POTASSIUM
     Route: 064
  3. PRESINOL [Concomitant]
     Active Substance: METHYLDOPA
     Dosage: 500 MG, TID; EXPOSURE IN 3RD TRIMESTER
     Route: 064

REACTIONS (4)
  - Renal failure acute [Recovering/Resolving]
  - Atrial septal defect [Unknown]
  - Vena cava thrombosis [Recovering/Resolving]
  - Cerebral infarction [Unknown]

NARRATIVE: CASE EVENT DATE: 20131128
